FAERS Safety Report 7729336-3 (Version None)
Quarter: 2011Q3

REPORT INFORMATION
  Report Type: 
  Country: None (occurrence: None)
  Receive Date: 20110819
  Receipt Date: 20110817
  Transmission Date: 20111222
  Serious: Yes (Other)
  Sender: FDA-Public Use
  Company Number: JHP201100371

PATIENT
  Age: 66 Year
  Sex: Male

DRUGS (1)
  1. APLISOL [Suspect]
     Indication: TUBERCULOSIS
     Dosage: 0.1 ML, SINGLE, INTRADERMAL
     Route: 023
     Dates: start: 20110725, end: 20110725

REACTIONS (2)
  - INJECTION SITE CELLULITIS [None]
  - INJECTION SITE ABSCESS [None]
